FAERS Safety Report 8611753-0 (Version None)
Quarter: 2012Q3

REPORT INFORMATION
  Report Type: 
  Country: None (occurrence: None)
  Receive Date: 20120822
  Receipt Date: 20120810
  Transmission Date: 20120928
  Serious: Yes (Other)
  Sender: FDA-Public Use
  Company Number: NO-TEVA-317141ISR

PATIENT
  Age: 49 Year
  Sex: Male

DRUGS (2)
  1. RANITIDINE [Concomitant]
     Indication: GASTROOESOPHAGEAL REFLUX DISEASE
  2. LANSOPRAZOLE [Suspect]
     Indication: GASTROOESOPHAGEAL REFLUX DISEASE
     Dosage: 30 MILLIGRAM DAILY; 30 MG, DAILY
     Dates: start: 19950101

REACTIONS (7)
  - DYSPEPSIA [None]
  - NEUROENDOCRINE CARCINOMA [None]
  - DYSPHAGIA [None]
  - WEIGHT DECREASED [None]
  - LYMPHADENOPATHY [None]
  - ENTEROCHROMAFFIN CELL HYPERPLASIA [None]
  - HYPERGASTRINAEMIA [None]
